FAERS Safety Report 21575816 (Version 1)
Quarter: 2022Q4

REPORT INFORMATION
  Report Type: Other
  Country: None (occurrence: IR)
  Receive Date: 20221110
  Receipt Date: 20221110
  Transmission Date: 20230113
  Serious: Yes (Hospitalization, Other)
  Sender: FDA-Public Use
  Company Number: IR-Caplin Steriles Limited-2134726

PATIENT
  Age: 20 Year
  Sex: Male

DRUGS (1)
  1. SUMATRIPTAN SUCCINATE [Suspect]
     Active Substance: SUMATRIPTAN SUCCINATE
     Indication: Product used for unknown indication
     Route: 065

REACTIONS (9)
  - Suicide attempt [Unknown]
  - Nephritic syndrome [Unknown]
  - Hepatotoxicity [Unknown]
  - Urinary incontinence [Unknown]
  - Anal incontinence [Unknown]
  - Toxicity to various agents [Unknown]
  - Hyperhidrosis [Unknown]
  - Agitation [Unknown]
  - Hallucination [Unknown]
